FAERS Safety Report 24117573 (Version 1)
Quarter: 2024Q3

REPORT INFORMATION
  Report Type: Spontaneous
  Country: US (occurrence: US)
  Receive Date: 20240722
  Receipt Date: 20240722
  Transmission Date: 20241016
  Serious: No
  Sender: DR REDDYS
  Company Number: None

PATIENT
  Age: 8 Decade
  Sex: Male

DRUGS (2)
  1. GEMCITABINE [Suspect]
     Active Substance: GEMCITABINE
     Indication: Benign neoplasm of islets of Langerhans
  2. GEMCITABINE [Suspect]
     Active Substance: GEMCITABINE
     Indication: Intraductal papillary mucinous neoplasm

REACTIONS (1)
  - Joint swelling [Unknown]
